FAERS Safety Report 16880244 (Version 1)
Quarter: 2019Q4

REPORT INFORMATION
  Report Type: Spontaneous
  Country: CA (occurrence: CA)
  Receive Date: 20191003
  Receipt Date: 20191003
  Transmission Date: 20200122
  Serious: Yes (Life-Threatening, Hospitalization, Disabling, Other)
  Sender: FDA-Public Use
  Company Number: CA-AUROBINDO-AUR-APL-2019-063387

PATIENT
  Age: 52 Year
  Sex: Female
  Weight: 61 kg

DRUGS (1)
  1. CIPROFLOXACIN. [Suspect]
     Active Substance: CIPROFLOXACIN
     Indication: URINARY TRACT INFECTION
     Dosage: UNK, TWO TIMES A DAY(DOSE:8)
     Route: 048

REACTIONS (14)
  - Chondropathy [Not Recovered/Not Resolved]
  - Muscle disorder [Not Recovered/Not Resolved]
  - Depression [Not Recovered/Not Resolved]
  - Hypophagia [Not Recovered/Not Resolved]
  - Tendon disorder [Not Recovered/Not Resolved]
  - Joint swelling [Not Recovered/Not Resolved]
  - Lacrimation increased [Not Recovered/Not Resolved]
  - Weight decreased [Not Recovered/Not Resolved]
  - Decreased appetite [Not Recovered/Not Resolved]
  - Joint noise [Not Recovered/Not Resolved]
  - Gastrointestinal disorder [Not Recovered/Not Resolved]
  - Rash [Not Recovered/Not Resolved]
  - Diarrhoea [Not Recovered/Not Resolved]
  - Arthropathy [Not Recovered/Not Resolved]
